FAERS Safety Report 21233803 (Version 1)
Quarter: 2022Q3

REPORT INFORMATION
  Report Type: Spontaneous
  Country: US (occurrence: None)
  Receive Date: 20220819
  Receipt Date: 20220819
  Transmission Date: 20221027
  Serious: Yes (Death)
  Sender: FDA-Public Use
  Company Number: None

PATIENT
  Age: 58 Year
  Sex: Female

DRUGS (5)
  1. PIQRAY [Suspect]
     Active Substance: ALPELISIB
     Indication: Brain neoplasm malignant
     Dosage: FREQUENCY : DAILY;?
     Route: 048
  2. PIQRAY [Suspect]
     Active Substance: ALPELISIB
     Indication: Metastases to lung
  3. PIQRAY [Suspect]
     Active Substance: ALPELISIB
     Indication: Metastasis
  4. PIQRAY [Suspect]
     Active Substance: ALPELISIB
     Indication: Bone cancer
  5. PIQRAY [Suspect]
     Active Substance: ALPELISIB
     Indication: Breast cancer female

REACTIONS (1)
  - Death [None]

NARRATIVE: CASE EVENT DATE: 20220729
